FAERS Safety Report 20610853 (Version 3)
Quarter: 2022Q2

REPORT INFORMATION
  Report Type: Report from Study
  Country: CA (occurrence: CA)
  Receive Date: 20220318
  Receipt Date: 20220624
  Transmission Date: 20220720
  Serious: Yes (Death, Other)
  Sender: FDA-Public Use
  Company Number: CA-VIIV HEALTHCARE LIMITED-CA2022AMR048417

PATIENT

DRUGS (2)
  1. FOSTEMSAVIR [Suspect]
     Active Substance: FOSTEMSAVIR
     Indication: HIV infection
     Dosage: 600 MG, BID
     Route: 048
     Dates: start: 20220112
  2. BICTEGRAVIR\EMTRICITABINE\TENOFOVIR ALAFENAMIDE [Concomitant]
     Active Substance: BICTEGRAVIR\EMTRICITABINE\TENOFOVIR ALAFENAMIDE
     Indication: HIV infection
     Dosage: UNK UNK, Z (DAILY)
     Route: 048
     Dates: start: 202110, end: 20220316

REACTIONS (2)
  - Diffuse large B-cell lymphoma [Fatal]
  - Condition aggravated [Fatal]
